FAERS Safety Report 7549230-0 (Version None)
Quarter: 2011Q2

REPORT INFORMATION
  Report Type: 
  Country: None (occurrence: None)
  Receive Date: 20110615
  Receipt Date: 20110601
  Transmission Date: 20111010
  Serious: Yes (Hospitalization)
  Sender: FDA-Public Use
  Company Number: PHHY2011SE51667

PATIENT
  Sex: Female

DRUGS (6)
  1. MADOPARK [Suspect]
     Indication: PARKINSONISM
     Dosage: UNK
     Route: 048
     Dates: end: 20110224
  2. VENTOLIN [Concomitant]
  3. LACTULOSE [Concomitant]
  4. ACETAMINOPHEN [Concomitant]
  5. PULMICORT [Concomitant]
  6. PRAVIDEL [Suspect]
     Indication: PARKINSONISM
     Dosage: 7.5 MG, UNK
     Route: 048
     Dates: end: 20110224

REACTIONS (2)
  - SOMNOLENCE [None]
  - DEPRESSED LEVEL OF CONSCIOUSNESS [None]
